FAERS Safety Report 11147737 (Version 7)
Quarter: 2016Q4

REPORT INFORMATION
  Report Type: Spontaneous
  Country: JP (occurrence: JP)
  Receive Date: 20150529
  Receipt Date: 20161215
  Transmission Date: 20170206
  Serious: Yes (Hospitalization, Other)
  Sender: FDA-Public Use
  Company Number: JP-009507513-1505JPN015235

PATIENT
  Age: 72 Year
  Sex: Male
  Weight: 68 kg

DRUGS (5)
  1. CINAL [Concomitant]
     Active Substance: ASCORBIC ACID\CALCIUM PANTOTHENATE
     Indication: CHRONIC PIGMENTED PURPURA
     Dosage: DAILY DOSE UNKNOWN
     Route: 048
     Dates: start: 20111015
  2. HIRUDOID [Concomitant]
     Active Substance: GLYCOSAMINOGLYCANS
     Indication: CHRONIC PIGMENTED PURPURA
     Dosage: DAILY DOSE UNKNOWN
     Route: 061
     Dates: start: 20111203
  3. JANUVIA [Suspect]
     Active Substance: SITAGLIPTIN PHOSPHATE
     Indication: TYPE 2 DIABETES MELLITUS
     Dosage: 25 MG, QD
     Route: 048
     Dates: start: 201409, end: 20150525
  4. XYZAL [Concomitant]
     Active Substance: LEVOCETIRIZINE DIHYDROCHLORIDE
     Indication: CHRONIC PIGMENTED PURPURA
     Dosage: DAILY DOSE UNKNOWN
     Route: 048
     Dates: start: 20120218
  5. ANTEBATE [Concomitant]
     Active Substance: BETAMETHASONE DIPROPIONATE
     Indication: CHRONIC PIGMENTED PURPURA
     Route: 061
     Dates: start: 20111015

REACTIONS (1)
  - Pemphigoid [Recovered/Resolved]

NARRATIVE: CASE EVENT DATE: 201411
